FAERS Safety Report 19183992 (Version 2)
Quarter: 2022Q1

REPORT INFORMATION
  Report Type: Report from Study
  Country: TR (occurrence: TR)
  Receive Date: 20210427
  Receipt Date: 20220107
  Transmission Date: 20220424
  Serious: Yes (Other)
  Sender: FDA-Public Use
  Company Number: TR-SUN PHARMACEUTICAL INDUSTRIES LTD-2021RR-293225

PATIENT
  Age: 4 Year
  Sex: Male

DRUGS (2)
  1. ACETAMINOPHEN [Suspect]
     Active Substance: ACETAMINOPHEN
     Indication: Drug provocation test
     Dosage: CUMULATIVE DOSE: 15 MG/KG/DOSE
     Route: 048
  2. ASPIRIN [Concomitant]
     Active Substance: ASPIRIN
     Indication: Drug provocation test
     Dosage: CUMULATIVE DOSE: 20 MG/KG/DOSE
     Route: 048

REACTIONS (1)
  - Rash maculo-papular [Unknown]
